FAERS Safety Report 6231835-0 (Version None)
Quarter: 2009Q2

REPORT INFORMATION
  Report Type: 
  Country: None (occurrence: None)
  Receive Date: 20090611
  Receipt Date: 20090611
  Transmission Date: 20091009
  Serious: Yes (Life-Threatening, Hospitalization)
  Sender: FDA-Public Use
  Company Number: None

PATIENT
  Age: 22 Year
  Sex: Male
  Weight: 88.4514 kg

DRUGS (2)
  1. TREN 2 XTREME 50MG, 10MG, 5 MG SYNTHETIC SCIENCE LABS [Suspect]
     Indication: MUSCLE BUILDING THERAPY
     Dosage: 1 CAPSULE 2 OR 3 TIMES DAILY PO
     Route: 048
     Dates: start: 20071217, end: 20071231
  2. ESTRO 2 XTREME 70 MG, 100MG, 5 MG SYNTHETIC SCIENCE LABS [Suspect]
     Indication: MUSCLE BUILDING THERAPY
     Dosage: 1 CAPSULE 2 OR 3 TIMES DAILY PO
     Route: 048
     Dates: start: 20071217, end: 20071231

REACTIONS (2)
  - BACK PAIN [None]
  - PULMONARY EMBOLISM [None]
